FAERS Safety Report 12844064 (Version 1)
Quarter: 2016Q4

REPORT INFORMATION
  Report Type: Spontaneous
  Country: US (occurrence: US)
  Receive Date: 20161012
  Receipt Date: 20161012
  Transmission Date: 20170207
  Serious: Yes (Death)
  Sender: FDA-Public Use
  Company Number: None

PATIENT
  Age: 51 Year
  Sex: Female
  Weight: 64.6 kg

DRUGS (1)
  1. ACETAMINOPEHN [Suspect]
     Active Substance: ACETAMINOPHEN
     Indication: PAIN MANAGEMENT
     Route: 048
     Dates: start: 20160504, end: 20160616

REACTIONS (9)
  - Toxic encephalopathy [None]
  - Lethargy [None]
  - Asthenia [None]
  - Multiple organ dysfunction syndrome [None]
  - Metabolic encephalopathy [None]
  - Hepatic encephalopathy [None]
  - Toxicity to various agents [None]
  - Hypotension [None]
  - Hypoglycaemia [None]

NARRATIVE: CASE EVENT DATE: 20160616
